FAERS Safety Report 16748146 (Version 2)
Quarter: 2019Q4

REPORT INFORMATION
  Report Type: Report from Study
  Country: CA (occurrence: CA)
  Receive Date: 20190827
  Receipt Date: 20191009
  Transmission Date: 20200122
  Serious: Yes (Other)
  Sender: FDA-Public Use
  Company Number: CA-TAKEDA-2018TUS027069

PATIENT
  Age: 42 Year
  Sex: Female

DRUGS (12)
  1. VEDOLIZUMAB [Suspect]
     Active Substance: VEDOLIZUMAB
     Dosage: 300 MILLIGRAM
     Route: 042
  2. VEDOLIZUMAB [Suspect]
     Active Substance: VEDOLIZUMAB
     Dosage: 300 MILLIGRAM, Q4WEEKS
     Route: 042
     Dates: start: 20181121
  3. VEDOLIZUMAB [Suspect]
     Active Substance: VEDOLIZUMAB
     Dosage: 300 MILLIGRAM, Q4WEEKS
     Route: 042
  4. PREDNISONE. [Concomitant]
     Active Substance: PREDNISONE
     Dosage: UNK
  5. VEDOLIZUMAB [Suspect]
     Active Substance: VEDOLIZUMAB
     Dosage: 300 MILLIGRAM, Q4WEEKS
     Route: 042
  6. VEDOLIZUMAB [Suspect]
     Active Substance: VEDOLIZUMAB
     Indication: CROHN^S DISEASE
     Dosage: 300 MILLIGRAM
     Route: 042
     Dates: start: 20180718
  7. VEDOLIZUMAB [Suspect]
     Active Substance: VEDOLIZUMAB
     Dosage: 300 MILLIGRAM, Q4WEEKS
     Route: 042
  8. VEDOLIZUMAB [Suspect]
     Active Substance: VEDOLIZUMAB
     Dosage: 300 MILLIGRAM, Q4WEEKS
     Route: 042
     Dates: start: 20190822
  9. IMURAN [Concomitant]
     Active Substance: AZATHIOPRINE
     Dosage: UNK
  10. VEDOLIZUMAB [Suspect]
     Active Substance: VEDOLIZUMAB
     Dosage: 300 MILLIGRAM
     Route: 042
  11. VITAMIN B12 [Concomitant]
     Active Substance: CYANOCOBALAMIN
     Dosage: UNK
  12. TRAMADOL. [Concomitant]
     Active Substance: TRAMADOL
     Dosage: UNK

REACTIONS (22)
  - Frequent bowel movements [Not Recovered/Not Resolved]
  - Rash [Unknown]
  - Faecal calprotectin increased [Unknown]
  - Loss of consciousness [Unknown]
  - Intestinal resection [Unknown]
  - Vomiting [Recovered/Resolved]
  - Nausea [Recovered/Resolved]
  - Malaise [Unknown]
  - Swelling [Recovered/Resolved]
  - Diarrhoea [Recovered/Resolved]
  - Swelling face [Unknown]
  - Arthralgia [Recovered/Resolved]
  - Joint swelling [Recovered/Resolved]
  - Acne [Recovered/Resolved]
  - Nasal congestion [Not Recovered/Not Resolved]
  - Off label use [Unknown]
  - Crohn^s disease [Unknown]
  - Abdominal pain [Not Recovered/Not Resolved]
  - Pain [Not Recovered/Not Resolved]
  - Oropharyngeal pain [Recovered/Resolved]
  - Headache [Unknown]
  - Respiratory tract infection [Not Recovered/Not Resolved]

NARRATIVE: CASE EVENT DATE: 2018
